FAERS Safety Report 14256084 (Version 5)
Quarter: 2018Q1

REPORT INFORMATION
  Report Type: Spontaneous
  Country: US (occurrence: US)
  Receive Date: 20171206
  Receipt Date: 20180329
  Transmission Date: 20180508
  Serious: Yes (Other)
  Sender: FDA-Public Use
  Company Number: US-SAOL THERAPEUTICS-0700870505

PATIENT
  Age: 53 Year
  Sex: Male

DRUGS (4)
  1. BACLOFEN. [Suspect]
     Active Substance: BACLOFEN
     Dosage: 108.06 ?G, \DAY
     Route: 037
  2. BACLOFEN. [Suspect]
     Active Substance: BACLOFEN
     Indication: MUSCLE SPASTICITY
     Dosage: 90 ?G, \DAY
     Route: 037
  3. BACLOFEN. [Suspect]
     Active Substance: BACLOFEN
     Dosage: 96 ?G, \DAY
     Route: 037
  4. ORAL BACLOFEN [Suspect]
     Active Substance: BACLOFEN
     Route: 048

REACTIONS (9)
  - Tremor [Unknown]
  - Delirium tremens [Unknown]
  - Drug dose omission [Unknown]
  - Muscle spasticity [Unknown]
  - Drug screen positive [Unknown]
  - Abdominal pain [Unknown]
  - Complication associated with device [Unknown]
  - Therapeutic response decreased [Unknown]
  - Implant site swelling [Unknown]

NARRATIVE: CASE EVENT DATE: 2015
